FAERS Safety Report 4645072-4 (Version None)
Quarter: 2005Q2

REPORT INFORMATION
  Report Type: 
  Country: None (occurrence: None)
  Receive Date: 20050422
  Receipt Date: 20050408
  Transmission Date: 20051028
  Serious: Yes (Hospitalization)
  Sender: FDA-Public Use
  Company Number: 2005BI005533

PATIENT
  Age: 34 Year
  Sex: Female

DRUGS (6)
  1. AVONEX [Suspect]
     Indication: MULTIPLE SCLEROSIS
     Dosage: 30 UG; QW; IM
     Route: 030
     Dates: start: 19990401
  2. NATALIZUMAB [Suspect]
     Indication: MULTIPLE SCLEROSIS
     Dosage: 300 MG; QM; IV
     Route: 042
     Dates: start: 20050207, end: 20050207
  3. BACLOFEN [Concomitant]
  4. PAXIL [Concomitant]
  5. NEURONTIN [Concomitant]
  6. AMANTADINE HCL [Concomitant]

REACTIONS (5)
  - MALAISE [None]
  - MULTIPLE SCLEROSIS [None]
  - PNEUMONIA BACTERIAL [None]
  - PNEUMONIA VIRAL [None]
  - PULMONARY OEDEMA [None]
